FAERS Safety Report 9917404 (Version 1)
Quarter: 2014Q1

REPORT INFORMATION
  Report Type: Spontaneous
  Country: US (occurrence: US)
  Receive Date: 20140221
  Receipt Date: 20140221
  Transmission Date: 20141002
  Serious: No
  Sender: FDA-Public Use
  Company Number: US-PFIZER INC-2014049082

PATIENT
  Age: 66 Year
  Sex: Female

DRUGS (9)
  1. EFFEXOR XR [Suspect]
     Dosage: UNK
  2. ZOLOFT [Suspect]
     Dosage: UNK
  3. EFFEXOR [Suspect]
     Dosage: UNK
  4. CLINDAMYCIN HCL [Suspect]
     Dosage: UNK
  5. KEFLEX [Suspect]
     Dosage: UNK
  6. LISINOPRIL [Suspect]
     Dosage: UNK
  7. ATIVAN [Suspect]
     Dosage: UNK
  8. AMOXICILLIN [Suspect]
     Dosage: UNK
  9. BUPROPION [Suspect]
     Dosage: UNK

REACTIONS (1)
  - Drug hypersensitivity [Unknown]
